FAERS Safety Report 5500743-2 (Version None)
Quarter: 2007Q4

REPORT INFORMATION
  Report Type: 
  Country: None (occurrence: None)
  Receive Date: 20071019
  Receipt Date: 20070110
  Transmission Date: 20080405
  Serious: Yes (Other)
  Sender: FDA-Public Use
  Company Number: 33514

PATIENT
  Age: 58 Year
  Sex: Female
  Weight: 90.7194 kg

DRUGS (2)
  1. FLUPHENAZINE DECANOATE [Suspect]
     Indication: ANXIETY
     Dosage: 254 MG/IM/EVERY 45 WEEKS
     Route: 030
     Dates: start: 20050101
  2. TEGRETOL [Concomitant]

REACTIONS (1)
  - DYSARTHRIA [None]
